FAERS Safety Report 14532250 (Version 3)
Quarter: 2018Q2

REPORT INFORMATION
  Report Type: Spontaneous
  Country: US (occurrence: US)
  Receive Date: 20180214
  Receipt Date: 20180523
  Transmission Date: 20180711
  Serious: No
  Sender: FDA-Public Use
  Company Number: US-TAIHO ONCOLOGY INC-EU-2018-00128

PATIENT
  Age: 55 Year
  Sex: Male

DRUGS (21)
  1. SPIRONOLACTONE. [Concomitant]
     Active Substance: SPIRONOLACTONE
     Dosage: NI
  2. LASIX [Concomitant]
     Active Substance: FUROSEMIDE
     Dosage: NI
  3. ONDANSETRON [Concomitant]
     Active Substance: ONDANSETRON
     Dosage: NI
  4. BARIUM [Concomitant]
     Active Substance: BARIUM
     Dosage: NI
  5. PROCHLORPERAZINE. [Concomitant]
     Active Substance: PROCHLORPERAZINE
     Dosage: NI
  6. LONSURF [Suspect]
     Active Substance: TIPIRACIL HYDROCHLORIDE\TRIFLURIDINE
     Indication: COLORECTAL CANCER METASTATIC
     Route: 048
     Dates: start: 20170213, end: 201708
  7. PARACETAMOL/HYDROCODONE [Concomitant]
     Dosage: NI
  8. LOMOTIL [Concomitant]
     Active Substance: ATROPINE SULFATE\DIPHENOXYLATE HYDROCHLORIDE
     Dosage: NI
  9. POTASSIUM [Concomitant]
     Active Substance: POTASSIUM
     Dosage: NI
  10. MIRTAZAPINE. [Concomitant]
     Active Substance: MIRTAZAPINE
     Dosage: NI
  11. FERROUS GLUCONATE [Concomitant]
     Active Substance: FERROUS GLUCONATE
     Dosage: NI
  12. CEFALEXIN [Concomitant]
     Active Substance: CEPHALEXIN
     Dosage: NI
  13. MEDROL [Concomitant]
     Active Substance: METHYLPREDNISOLONE
     Dosage: NI
  14. FERROUS FUMARATE [Concomitant]
     Active Substance: FERROUS FUMARATE
     Dosage: NI
  15. CITALOPRAM [Concomitant]
     Active Substance: CITALOPRAM HYDROBROMIDE
     Dosage: NI
  16. MS CONTIN [Concomitant]
     Active Substance: MORPHINE SULFATE
     Dosage: NI
  17. CLINDAMYCIN. [Concomitant]
     Active Substance: CLINDAMYCIN
     Dosage: NI
  18. NYSTATIN. [Concomitant]
     Active Substance: NYSTATIN
     Dosage: NI
  19. CIPROFLOXACIN. [Concomitant]
     Active Substance: CIPROFLOXACIN
     Dosage: NI
  20. DOXYCYL [Concomitant]
     Active Substance: DOXYCYCLINE HYDROCHLORIDE
     Dosage: NI
  21. REMERON [Concomitant]
     Active Substance: MIRTAZAPINE
     Dosage: NI

REACTIONS (1)
  - Disease progression [Unknown]

NARRATIVE: CASE EVENT DATE: 20170626
